FAERS Safety Report 19551292 (Version 1)
Quarter: 2021Q3

REPORT INFORMATION
  Report Type: Spontaneous
  Country: US (occurrence: US)
  Receive Date: 20210715
  Receipt Date: 20210715
  Transmission Date: 20211014
  Serious: No
  Sender: FDA-Public Use
  Company Number: US-DRREDDYS-SPO/USA/21/0137759

PATIENT
  Age: 42 Year
  Sex: Female

DRUGS (2)
  1. ZENATANE [Suspect]
     Active Substance: ISOTRETINOIN
     Indication: PRODUCT USED FOR UNKNOWN INDICATION
     Dates: start: 20210601
  2. ZENATANE [Suspect]
     Active Substance: ISOTRETINOIN
     Dates: start: 20210601

REACTIONS (2)
  - Skin irritation [Unknown]
  - Erythema [Unknown]
